FAERS Safety Report 19570628 (Version 1)
Quarter: 2021Q3

REPORT INFORMATION
  Report Type: Report from Study
  Country: None (occurrence: SK)
  Receive Date: 20210716
  Receipt Date: 20210716
  Transmission Date: 20211014
  Serious: Yes (Death, Hospitalization)
  Sender: FDA-Public Use
  Company Number: SK-ABBVIE-21K-260-3994558-00

PATIENT
  Sex: Male

DRUGS (2)
  1. DUODOPA [Suspect]
     Active Substance: CARBIDOPA\LEVODOPA
  2. DUODOPA [Suspect]
     Active Substance: CARBIDOPA\LEVODOPA
     Indication: PARKINSON^S DISEASE
     Route: 050

REACTIONS (10)
  - Septic shock [Fatal]
  - Thrombosis [Unknown]
  - Malaise [Unknown]
  - C-reactive protein abnormal [Unknown]
  - Pneumonia [Unknown]
  - Catheter site infection [Unknown]
  - Inflammation [Unknown]
  - Hospitalisation [Unknown]
  - Infection [Unknown]
  - Pyrexia [Unknown]
